FAERS Safety Report 15775446 (Version 1)
Quarter: 2018Q4

REPORT INFORMATION
  Report Type: Spontaneous
  Country: US (occurrence: US)
  Receive Date: 20181231
  Receipt Date: 20181231
  Transmission Date: 20190205
  Serious: Yes (Other)
  Sender: FDA-Public Use
  Company Number: US-ROCHE-2236167

PATIENT
  Sex: Female
  Weight: 69.92 kg

DRUGS (2)
  1. ACTEMRA [Suspect]
     Active Substance: TOCILIZUMAB
     Indication: PRODUCT USED FOR UNKNOWN INDICATION
     Dosage: ONCE WEEKLY INJECTION EVERY FRIDAY
     Route: 058
  2. PREDNISONE. [Concomitant]
     Active Substance: PREDNISONE
     Dosage: EYE DROPS ;ONGOING: UNKNOWN
     Route: 065

REACTIONS (4)
  - Tympanic membrane perforation [Unknown]
  - Hypoacusis [Unknown]
  - Blood glucose increased [Unknown]
  - Malaise [Unknown]
